FAERS Safety Report 8123947-1 (Version None)
Quarter: 2012Q1

REPORT INFORMATION
  Report Type: 
  Country: None (occurrence: None)
  Receive Date: 20120209
  Receipt Date: 20120201
  Transmission Date: 20120608
  Serious: Yes (Disabling)
  Sender: FDA-Public Use
  Company Number: JP-JNJFOC-20110900545

PATIENT
  Sex: Female
  Weight: 53 kg

DRUGS (35)
  1. REMICADE [Suspect]
     Route: 042
     Dates: start: 20110426, end: 20110610
  2. XYLOCAINE [Concomitant]
     Dates: start: 20100330
  3. ISOTONIC SODIUM CHLORIDE SOLUTION [Concomitant]
     Route: 050
     Dates: start: 20110412, end: 20110412
  4. REMICADE [Suspect]
     Indication: RHEUMATOID ARTHRITIS
     Route: 042
     Dates: start: 20101214
  5. REMICADE [Suspect]
     Route: 042
     Dates: start: 20100916
  6. KENACORT-A OPHTHALMIC OINTMENT [Concomitant]
     Route: 050
     Dates: start: 20110531
  7. ISOTONIC SODIUM CHLORIDE SOLUTION [Concomitant]
     Route: 042
     Dates: start: 20100114
  8. DEQUALINIUM [Concomitant]
     Dosage: TOTAL DAILY DOSE 3 MG
     Route: 048
     Dates: start: 20101012
  9. MOVER [Concomitant]
     Route: 048
  10. REMICADE [Suspect]
     Route: 042
     Dates: start: 20100902
  11. REMICADE [Suspect]
     Dosage: SIXTH DOSE OF INFLIXIMAB, RECOMBINANT
     Route: 042
     Dates: start: 20110412
  12. RHEUMATREX [Suspect]
     Route: 048
     Dates: start: 20100125, end: 20110425
  13. SELTOUCH [Concomitant]
     Dates: start: 20100713
  14. CLARITHROMYCIN [Concomitant]
     Dosage: TOTAL DAILY DOSE 400 MG
     Route: 048
     Dates: start: 20101012
  15. REMICADE [Suspect]
     Route: 042
     Dates: start: 20101012
  16. PREDNISOLONE [Concomitant]
     Route: 048
     Dates: start: 20110614
  17. PREDNISOLONE [Concomitant]
     Route: 048
     Dates: start: 20100104
  18. REMICADE [Suspect]
     Route: 042
     Dates: start: 20110215
  19. KENACORT-A OPHTHALMIC OINTMENT [Concomitant]
     Route: 050
     Dates: start: 20100330
  20. GASLON [Concomitant]
     Route: 048
     Dates: start: 20091228
  21. ISOTONIC SODIUM CHLORIDE SOLUTION [Concomitant]
     Route: 050
     Dates: start: 20101214, end: 20101214
  22. REMICADE [Suspect]
     Route: 042
     Dates: start: 20101016
  23. GASLON [Concomitant]
     Route: 048
     Dates: start: 20100104
  24. PREDNISOLONE [Concomitant]
     Route: 048
     Dates: start: 20091228
  25. NON-PYRINE COLD PREPARATION [Concomitant]
     Dosage: TOTAL DAILY DOSE 3 GM
     Route: 048
     Dates: start: 20101012
  26. RHEUMATREX [Suspect]
     Indication: RHEUMATOID ARTHRITIS
     Route: 048
     Dates: start: 20110426, end: 20110610
  27. GASLON [Concomitant]
     Route: 048
     Dates: start: 20100125
  28. PREDNISOLONE [Concomitant]
     Route: 048
     Dates: start: 20100114
  29. LIMETHASON [Concomitant]
     Route: 042
     Dates: start: 20091228
  30. PRELONE [Concomitant]
     Route: 048
     Dates: start: 20110322
  31. PRELONE [Concomitant]
     Route: 048
     Dates: start: 20110114
  32. ISOTONIC SODIUM CHLORIDE SOLUTION [Concomitant]
     Route: 050
     Dates: start: 20110215, end: 20110215
  33. INDOMETHACIN [Concomitant]
     Route: 065
  34. KETOPROFEN [Concomitant]
     Route: 065
  35. ISOTONIC SODIUM CHLORIDE SOLUTION [Concomitant]
     Route: 050
     Dates: start: 20101016, end: 20101016

REACTIONS (3)
  - COUGH [None]
  - RHEUMATOID ARTHRITIS [None]
  - SARCOMA [None]
